FAERS Safety Report 8056088-2 (Version None)
Quarter: 2012Q1

REPORT INFORMATION
  Report Type: 
  Country: None (occurrence: None)
  Receive Date: 20120119
  Receipt Date: 20120110
  Transmission Date: 20120608
  Serious: Yes (Hospitalization)
  Sender: FDA-Public Use
  Company Number: US-JNJFOC-20101101759

PATIENT
  Age: 23 Year
  Sex: Male
  Weight: 72.7 kg

DRUGS (3)
  1. ALCOHOL [Suspect]
     Indication: SLEEP DISORDER THERAPY
     Route: 048
  2. NODOZ [Suspect]
     Indication: SLEEP DISORDER THERAPY
     Route: 048
  3. ACETAMINOPHEN/DIPHENHYDRAMINE HCL [Suspect]
     Indication: SELF INJURIOUS BEHAVIOUR
     Route: 048

REACTIONS (3)
  - TACHYCARDIA [None]
  - SOMNOLENCE [None]
  - INTENTIONAL OVERDOSE [None]
